FAERS Safety Report 6099799-0 (Version None)
Quarter: 2009Q1

REPORT INFORMATION
  Report Type: 
  Country: None (occurrence: None)
  Receive Date: 20090303
  Receipt Date: 20090219
  Transmission Date: 20090719
  Serious: Yes (Other)
  Sender: FDA-Public Use
  Company Number: PHEH2009US01994

PATIENT

DRUGS (7)
  1. CLOZARIL [Suspect]
     Indication: BIPOLAR DISORDER
     Dosage: 200 MG, QD
     Dates: start: 20030101
  2. CLOZARIL [Suspect]
     Indication: SCHIZOPHRENIA
  3. STELAZINE [Concomitant]
  4. TOPAMAX [Concomitant]
  5. GEODON [Concomitant]
  6. DDAVP                                   /UNK/ [Concomitant]
  7. EFFEXOR [Concomitant]

REACTIONS (4)
  - ANAEMIA [None]
  - HAEMATOCRIT DECREASED [None]
  - MENORRHAGIA [None]
  - RED BLOOD CELL COUNT DECREASED [None]
